FAERS Safety Report 12216786 (Version 5)
Quarter: 2017Q1

REPORT INFORMATION
  Report Type: Spontaneous
  Country: US (occurrence: US)
  Receive Date: 20160329
  Receipt Date: 20170306
  Transmission Date: 20170428
  Serious: Yes (Other)
  Sender: FDA-Public Use
  Company Number: US-PFIZER INC-2016180333

PATIENT
  Age: 71 Year
  Sex: Female
  Weight: 63 kg

DRUGS (8)
  1. ATENOLOL W/CHLORTALIDONE [Concomitant]
     Active Substance: ATENOLOL\CHLORTHALIDONE
     Indication: HYPERTENSION
     Dosage: 1 DF, DAILY [ATENOLOL:50 MG, CHLORTALIDONE: 25 MG]
     Route: 048
  2. CHANTIX [Suspect]
     Active Substance: VARENICLINE TARTRATE
     Dosage: UNK
  3. SIMVASTATIN. [Concomitant]
     Active Substance: SIMVASTATIN
     Indication: BLOOD CHOLESTEROL INCREASED
     Dosage: 1 DF, DAILY
     Route: 048
     Dates: end: 2016
  4. ATENOLOL. [Concomitant]
     Active Substance: ATENOLOL
     Indication: HYPERTENSION
     Dosage: UNK UNK, 1X/DAY 50/25 MG, ONCE A DAY
  5. NEXIUM 24HR [Concomitant]
     Active Substance: ESOMEPRAZOLE MAGNESIUM
     Dosage: 23 MG
  6. LOVASTATIN. [Concomitant]
     Active Substance: LOVASTATIN
     Indication: BLOOD CHOLESTEROL
     Dosage: 10 MG, 1X/DAY
     Dates: start: 201605
  7. CHANTIX [Suspect]
     Active Substance: VARENICLINE TARTRATE
     Dosage: 1 MG, 2X/DAY [1MG ONE TABLET BY MOUTH IN THE MORNING AND ONE 1MG TABLET BY MOUTH AT NIGHT]
     Dates: start: 201701, end: 20170201
  8. CHANTIX [Suspect]
     Active Substance: VARENICLINE TARTRATE
     Indication: SMOKING CESSATION THERAPY
     Dosage: 1 MG, 2X/DAY (ONE IN THE MORNING AND ONE IN THE EVENING)
     Route: 048
     Dates: start: 20160327, end: 201604

REACTIONS (5)
  - Fatigue [Recovered/Resolved]
  - Apathy [Unknown]
  - Hypersomnia [Unknown]
  - Insomnia [Recovered/Resolved]
  - Aneurysm [Unknown]

NARRATIVE: CASE EVENT DATE: 20160721
